FAERS Safety Report 18753434 (Version 5)
Quarter: 2021Q2

REPORT INFORMATION
  Report Type: Spontaneous
  Country: FR (occurrence: FR)
  Receive Date: 20210118
  Receipt Date: 20210510
  Transmission Date: 20210717
  Serious: Yes (Other)
  Sender: FDA-Public Use
  Company Number: FR-JNJFOC-20210116735

PATIENT
  Age: 57 Year
  Sex: Female
  Weight: 50 kg

DRUGS (14)
  1. ACTISKENAN [Suspect]
     Active Substance: MORPHINE SULFATE
     Indication: PAIN
     Dosage: SULFATE DE MORPHINE
     Route: 048
  2. SKENAN L.P [Suspect]
     Active Substance: MORPHINE SULFATE
     Indication: PAIN
     Dosage: 1?0?2 MORPHINE (SULFATE DE)
     Route: 048
  3. SKENAN [Suspect]
     Active Substance: MORPHINE SULFATE
     Indication: PRODUCT USED FOR UNKNOWN INDICATION
     Dosage: 10MG 1?0?2  ALWAYS 12UI/D CHEMOTHERAPY PROTOCOL
     Route: 065
  4. CAPECITABINE. [Suspect]
     Active Substance: CAPECITABINE
     Indication: BREAST CANCER METASTATIC
     Dosage: 500 MG: 2?0?2 5D/7, 2S/3
     Route: 065
     Dates: start: 2019, end: 20200908
  5. OMEPRAZOLE. [Suspect]
     Active Substance: OMEPRAZOLE
     Indication: GASTROOESOPHAGEAL REFLUX DISEASE
     Route: 048
  6. CAPECITABINE. [Suspect]
     Active Substance: CAPECITABINE
     Route: 048
     Dates: start: 2019, end: 20200908
  7. PERTUZUMAB. [Suspect]
     Active Substance: PERTUZUMAB
     Indication: BREAST CANCER METASTATIC
     Dosage: CYCLICAL
     Route: 041
     Dates: start: 20200302
  8. CETIRIZINE HYDROCHLORIDE. [Suspect]
     Active Substance: CETIRIZINE HYDROCHLORIDE
     Indication: PROPHYLAXIS OF NAUSEA AND VOMITING
     Dosage: 1 CYCLICAL
     Route: 048
  9. PACLITAXEL. [Suspect]
     Active Substance: PACLITAXEL
     Indication: BREAST CANCER METASTATIC
     Dosage: CYCLICAL
     Route: 041
     Dates: start: 20200309, end: 20200825
  10. ACTISKENAN [Suspect]
     Active Substance: MORPHINE SULFATE
     Dosage: 5 MG AS NEEDED
     Route: 065
  11. PREDNISOLONE. [Suspect]
     Active Substance: PREDNISOLONE
     Indication: PROPHYLAXIS OF NAUSEA AND VOMITING
     Dosage: CYCLICAL
     Route: 048
  12. CIMETIDINE [Suspect]
     Active Substance: CIMETIDINE
     Indication: PROPHYLAXIS OF NAUSEA AND VOMITING
     Dosage: CYCLICAL, 200MG/CURE
     Route: 048
  13. TRASTUZUMAB. [Suspect]
     Active Substance: TRASTUZUMAB
     Indication: BREAST CANCER METASTATIC
     Dosage: CYCLICAL
     Route: 041
     Dates: start: 20200302
  14. TOUJEO [Suspect]
     Active Substance: INSULIN GLARGINE
     Indication: INSULIN-REQUIRING TYPE 2 DIABETES MELLITUS
     Dosage: INSULINE GLARGINE (BACTERIE/ESCHERICHIA COLI)
     Route: 058

REACTIONS (2)
  - Keratitis [Recovering/Resolving]
  - Visual acuity reduced [Recovering/Resolving]

NARRATIVE: CASE EVENT DATE: 202006
